FAERS Safety Report 9777928 (Version 1)
Quarter: 2013Q4

REPORT INFORMATION
  Report Type: Report from Study
  Country: CN (occurrence: CN)
  Receive Date: 20131223
  Receipt Date: 20131223
  Transmission Date: 20140711
  Serious: Yes (Hospitalization)
  Sender: FDA-Public Use
  Company Number: CN-AMGEN-CHNCT2013089402

PATIENT
  Age: 31 Year
  Sex: Male

DRUGS (5)
  1. DARBEPOETIN ALFA [Suspect]
     Indication: NEPHROGENIC ANAEMIA
     Dosage: 20 MUG, UNK
     Route: 042
     Dates: start: 20131119
  2. EPOETIN ALFA [Suspect]
     Dosage: 3000 IU, WEEK
     Route: 042
     Dates: start: 20130924, end: 20131021
  3. NIFEDIPINE [Concomitant]
     Dosage: 30 MG, BID
     Route: 048
     Dates: start: 20130501
  4. IRBESARTAN [Concomitant]
     Dosage: 150 MG, QD
     Route: 048
     Dates: start: 20130501
  5. METOPROLOL TARTRATE [Concomitant]
     Dosage: 12.5 MG, BID
     Route: 048
     Dates: start: 20130905

REACTIONS (1)
  - Arteriovenous fistula thrombosis [Unknown]
